FAERS Safety Report 23692847 (Version 1)
Quarter: 2024Q2

REPORT INFORMATION
  Report Type: Spontaneous
  Country: US (occurrence: US)
  Receive Date: 20240401
  Receipt Date: 20240401
  Transmission Date: 20240715
  Serious: No
  Sender: FDA-Public Use
  Company Number: US-ABBVIE-5696359

PATIENT
  Age: 40 Year
  Sex: Female

DRUGS (1)
  1. KYBELLA [Suspect]
     Active Substance: DEOXYCHOLIC ACID
     Indication: Fat tissue increased
     Dosage: FORM STRENGTH- DEOXYCHOLIC ACID 10MG/ML SOL
     Route: 058

REACTIONS (1)
  - Pustule [Recovered/Resolved]

NARRATIVE: CASE EVENT DATE: 20240325
